FAERS Safety Report 5293122-7 (Version None)
Quarter: 2007Q2

REPORT INFORMATION
  Report Type: 
  Country: None (occurrence: None)
  Receive Date: 20070411
  Receipt Date: 20070327
  Transmission Date: 20071010
  Serious: Yes (Death, Hospitalization, Other)
  Sender: FDA-Public Use
  Company Number: CA-AMGEN-KDL210611

PATIENT
  Sex: Male

DRUGS (1)
  1. ENBREL [Suspect]
     Indication: RHEUMATOID ARTHRITIS
     Route: 058
     Dates: start: 20021221, end: 20070208

REACTIONS (14)
  - ABSCESS [None]
  - ANXIETY [None]
  - DEATH [None]
  - DECREASED APPETITE [None]
  - DEHYDRATION [None]
  - FATIGUE [None]
  - GANGRENE [None]
  - LUNG CANCER METASTATIC [None]
  - LUNG SQUAMOUS CELL CARCINOMA STAGE UNSPECIFIED [None]
  - NECROTISING FASCIITIS [None]
  - PAIN [None]
  - PULMONARY EMBOLISM [None]
  - RECTOSIGMOID CANCER [None]
  - SEPSIS [None]
